FAERS Safety Report 9619277 (Version 1)
Quarter: 2013Q4

REPORT INFORMATION
  Report Type: Spontaneous
  Country: GB (occurrence: GB)
  Receive Date: 20131014
  Receipt Date: 20131014
  Transmission Date: 20140711
  Serious: Yes (Other)
  Sender: FDA-Public Use
  Company Number: GB-SHIRE-SPV1-2013-00023

PATIENT
  Age: 38 Year
  Sex: Female

DRUGS (1)
  1. MEZAVANT XL [Suspect]
     Indication: COLITIS ULCERATIVE
     Dosage: 2400 MG 1X/DAY;QD
     Route: 048
     Dates: start: 20130128

REACTIONS (2)
  - Feeling abnormal [Recovered/Resolved]
  - Product quality issue [Unknown]
